FAERS Safety Report 14566942 (Version 8)
Quarter: 2018Q3

REPORT INFORMATION
  Report Type: Spontaneous
  Country: DE (occurrence: DE)
  Receive Date: 20180223
  Receipt Date: 20180727
  Transmission Date: 20181010
  Serious: Yes (Other)
  Sender: FDA-Public Use
  Company Number: DE-009507513-1802DEU006948

PATIENT
  Sex: Male

DRUGS (14)
  1. BISOPROLOL [Interacting]
     Active Substance: BISOPROLOL
     Indication: PRODUCT USED FOR UNKNOWN INDICATION
     Dosage: UNK UNK, QD (ONE TABLET DAILY IN THE MORNING)
     Route: 065
  2. MIFLONIDE [Interacting]
     Active Substance: BUDESONIDE
     Indication: PRODUCT USED FOR UNKNOWN INDICATION
     Dosage: 400 MICROGRAM, AS NEEDED; AS REQUIRED; AS NECESSARY
     Route: 065
  3. SIMVA [Interacting]
     Active Substance: SIMVASTATIN
     Indication: PRODUCT USED FOR UNKNOWN INDICATION
     Dosage: 20 MG, QD (ONE TABLET DAILY IN THE MORNING)
     Route: 065
  4. PANTOPRAZOLE SODIUM. [Interacting]
     Active Substance: PANTOPRAZOLE SODIUM
     Dosage: 40 MG, QD (ONE TABLET IN THE MORNING)
     Route: 065
  5. GLIMEPIRIDE. [Interacting]
     Active Substance: GLIMEPIRIDE
     Indication: PRODUCT USED FOR UNKNOWN INDICATION
     Dosage: 6 MG, QD (ONE TABLET DAILY IN THE MORNING)
     Route: 065
  6. FORADIL [Interacting]
     Active Substance: FORMOTEROL FUMARATE
     Indication: PRODUCT USED FOR UNKNOWN INDICATION
     Dosage: 12 MICROGRAM, AS NEEDED; AS REQUIRED; AS NECESSARY
     Route: 065
  7. CANDESARTAN CILEXETIL (+) HYDROCHLOROTHIAZIDE [Interacting]
     Active Substance: CANDESARTAN CILEXETIL\HYDROCHLOROTHIAZIDE
     Indication: PRODUCT USED FOR UNKNOWN INDICATION
     Dosage: UNK UNK, QD (16 MG/12.5 MG, ONE TABLET DAILY AT NIGHT)
     Route: 065
  8. SPIRONOLACTONE. [Interacting]
     Active Substance: SPIRONOLACTONE
     Indication: PRODUCT USED FOR UNKNOWN INDICATION
     Dosage: 6 MG, QD
     Route: 065
  9. SPIRONOLACTONE. [Interacting]
     Active Substance: SPIRONOLACTONE
     Dosage: 50 MG, QD (ONE TABLET DAILY IN THE MORNING)
     Route: 065
  10. PANTOPRAZOLE SODIUM. [Interacting]
     Active Substance: PANTOPRAZOLE SODIUM
     Indication: PRODUCT USED FOR UNKNOWN INDICATION
     Dosage: 40 MG, BID (ONE TABLET IN THE MORNING AND ONE TABLET AT NIGHT FOR 2 WEEKS)
     Route: 065
  11. SPIRIVA [Interacting]
     Active Substance: TIOTROPIUM BROMIDE MONOHYDRATE
     Indication: PRODUCT USED FOR UNKNOWN INDICATION
     Dosage: AS NEEDED; AS REQUIRED ; AS NECESSARY (REPORTED ALSO AS HARD CAPSULE)
     Route: 065
  12. ASPIRIN. [Interacting]
     Active Substance: ASPIRIN
     Indication: PRODUCT USED FOR UNKNOWN INDICATION
     Dosage: UNK UNK, QD (ONE TABLET DAILY IN THE MORNING)
     Route: 065
  13. MK?0000 [Suspect]
     Active Substance: INVESTIGATIONAL PRODUCT
     Dosage: UNK
  14. L?THYROXIN [Interacting]
     Active Substance: LEVOTHYROXINE SODIUM
     Indication: PRODUCT USED FOR UNKNOWN INDICATION
     Dosage: 50 MICROGRAM, QD (ONE TABLET DAILY IN THE MORNING)
     Route: 065

REACTIONS (2)
  - Drug interaction [Unknown]
  - Blood glucose increased [Unknown]
